FAERS Safety Report 15633871 (Version 1)
Quarter: 2018Q4

REPORT INFORMATION
  Report Type: Spontaneous
  Country: US (occurrence: US)
  Receive Date: 20181113
  Receipt Date: 20181113
  Transmission Date: 20190205
  Serious: Yes (Life-Threatening, Hospitalization, Disabling, Other)
  Sender: FDA-Public Use
  Company Number: None

PATIENT
  Age: 65 Year
  Sex: Female
  Weight: 82.8 kg

DRUGS (8)
  1. VIVELLE DOT .25MCG [Concomitant]
  2. VITAMIN D 4000 UNITS [Concomitant]
  3. PREDNISONE 5MG [Concomitant]
     Active Substance: PREDNISONE
  4. VITRON C [Concomitant]
     Active Substance: ASCORBIC ACID\IRON
  5. H.P. ACTHAR [Suspect]
     Active Substance: CORTICOTROPIN
     Indication: RHEUMATOID ARTHRITIS
     Dosage: ?          QUANTITY:4 INJECTION(S);OTHER FREQUENCY:EVERY 72 HOURS;?
     Route: 030
     Dates: start: 20181029, end: 20181111
  6. VAGIFEM 10 MCG [Concomitant]
  7. ARAVA [Concomitant]
     Active Substance: LEFLUNOMIDE
  8. FOLIC ACID 1 MG [Concomitant]

REACTIONS (4)
  - Middle insomnia [None]
  - Musculoskeletal pain [None]
  - Atrial fibrillation [None]
  - Blood pressure increased [None]

NARRATIVE: CASE EVENT DATE: 20181111
